FAERS Safety Report 4308751-4 (Version None)
Quarter: 2004Q1

REPORT INFORMATION
  Report Type: 
  Country: None (occurrence: None)
  Receive Date: 20040301
  Receipt Date: 20040301
  Transmission Date: 20041129
  Serious: Yes (Other)
  Sender: FDA-Public Use
  Company Number: None

PATIENT
  Age: 49 Year
  Sex: Male
  Weight: 97.5234 kg

DRUGS (1)
  1. ZICAM HOMEOPATHIC [Suspect]
     Indication: NASOPHARYNGITIS
     Dosage: 2-3 USES DAY NASAL
     Route: 045
     Dates: start: 20031220, end: 20031224

REACTIONS (2)
  - AGEUSIA [None]
  - ANOSMIA [None]
